FAERS Safety Report 8301080-3 (Version None)
Quarter: 2012Q2

REPORT INFORMATION
  Report Type: 
  Country: None (occurrence: None)
  Receive Date: 20120420
  Receipt Date: 20120411
  Transmission Date: 20120825
  Serious: Yes (Other)
  Sender: FDA-Public Use
  Company Number: NL-MEDIMMUNE-MEDI-0013668

PATIENT
  Sex: Female
  Weight: 5.14 kg

DRUGS (5)
  1. NATRIUMCALCIUMGLUCONAATDRANK [Concomitant]
     Dates: start: 20110713
  2. SYNAGIS [Suspect]
     Route: 030
     Dates: start: 20120411, end: 20120411
  3. NATRIUMKALIUMFOSFAATDRANK [Concomitant]
  4. FERROFUMERAATDRANK [Concomitant]
  5. SYNAGIS [Suspect]
     Route: 030
     Dates: start: 20110901, end: 20110901

REACTIONS (5)
  - HYPOPHAGIA [None]
  - FLUID INTAKE REDUCED [None]
  - VOMITING [None]
  - FEEDING DISORDER [None]
  - RETCHING [None]
